FAERS Safety Report 7291741-X (Version None)
Quarter: 2011Q1

REPORT INFORMATION
  Report Type: 
  Country: None (occurrence: None)
  Receive Date: 20110209
  Receipt Date: 20110209
  Transmission Date: 20110831
  Serious: Yes (Other)
  Sender: FDA-Public Use
  Company Number: None

PATIENT
  Sex: Female
  Weight: 56.6996 kg

DRUGS (1)
  1. ZOLPIDEM [Suspect]
     Indication: VIRAL UPPER RESPIRATORY TRACT INFECTION
     Dosage: 1 TABLET BEDTIME PO
     Route: 048
     Dates: start: 20110203, end: 20110206

REACTIONS (10)
  - ANGER [None]
  - NIGHTMARE [None]
  - AGGRESSION [None]
  - TREMOR [None]
  - PARALYSIS [None]
  - PALPITATIONS [None]
  - FEAR [None]
  - ANXIETY [None]
  - FRUSTRATION [None]
  - DEPRESSED MOOD [None]
